FAERS Safety Report 9426732 (Version 1)
Quarter: 2013Q3

REPORT INFORMATION
  Report Type: Spontaneous
  Country: US (occurrence: US)
  Receive Date: 20130730
  Receipt Date: 20130730
  Transmission Date: 20140515
  Serious: Yes (Other)
  Sender: FDA-Public Use
  Company Number: US-SANOFI-AVENTIS-2012SA086666

PATIENT
  Age: 35 Year
  Sex: Male

DRUGS (1)
  1. ZOLPIDEM TARTRATE [Suspect]
     Indication: SLEEP DISORDER
     Dosage: 5 OR 10 MG - NOT SURE
     Route: 048
     Dates: end: 201209

REACTIONS (1)
  - Impaired driving ability [Recovered/Resolved]
